FAERS Safety Report 20672217 (Version 2)
Quarter: 2022Q2

REPORT INFORMATION
  Report Type: Spontaneous
  Country: ZA (occurrence: ZA)
  Receive Date: 20220405
  Receipt Date: 20220407
  Transmission Date: 20220721
  Serious: Yes (Other)
  Sender: FDA-Public Use
  Company Number: ZA-CELLTRION INC.-2021ZA002532

PATIENT

DRUGS (13)
  1. INFLIXIMAB [Suspect]
     Active Substance: INFLIXIMAB
     Indication: Colitis ulcerative
     Dosage: 400 MG
     Route: 042
     Dates: start: 20210112
  2. INFLIXIMAB [Suspect]
     Active Substance: INFLIXIMAB
     Indication: Colitis
     Dosage: 400 MG, 6 WEEKLY
     Route: 042
     Dates: start: 20210112
  3. INFLIXIMAB [Suspect]
     Active Substance: INFLIXIMAB
     Dosage: 400 MG; 2 WEEKS
     Route: 042
     Dates: start: 20210126
  4. INFLIXIMAB [Suspect]
     Active Substance: INFLIXIMAB
     Dosage: 400 MG; 6 WEEKS
     Route: 042
     Dates: start: 20210223
  5. INFLIXIMAB [Suspect]
     Active Substance: INFLIXIMAB
     Dosage: 400 MG; 8 WEEKS
     Route: 042
     Dates: start: 20210507
  6. INFLIXIMAB [Suspect]
     Active Substance: INFLIXIMAB
     Dosage: 400 MG; 8 WEEKS
     Route: 042
     Dates: start: 20210622
  7. INFLIXIMAB [Suspect]
     Active Substance: INFLIXIMAB
     Dosage: 400 MG; 8 WEEKS
     Route: 042
     Dates: start: 20210816
  8. INFLIXIMAB [Suspect]
     Active Substance: INFLIXIMAB
     Dosage: 400 MG; 8 WEEKS
     Route: 042
     Dates: start: 20211014
  9. MESALAMINE [Concomitant]
     Active Substance: MESALAMINE
     Indication: Colitis ulcerative
     Dosage: 4.8 G
     Dates: start: 201810
  10. MESALAMINE [Concomitant]
     Active Substance: MESALAMINE
     Indication: Colitis
  11. AZATHIOPRINE [Concomitant]
     Active Substance: AZATHIOPRINE
     Indication: Colitis ulcerative
     Dosage: 150 MG
     Dates: start: 201901
  12. AZATHIOPRINE [Concomitant]
     Active Substance: AZATHIOPRINE
     Indication: Colitis
  13. PREDNISONE [Concomitant]
     Active Substance: PREDNISONE
     Indication: Colitis ulcerative
     Dosage: 40 MG, DAILY
     Route: 048
     Dates: start: 202109

REACTIONS (7)
  - Influenza [Not Recovered/Not Resolved]
  - Condition aggravated [Not Recovered/Not Resolved]
  - Fatigue [Unknown]
  - Nausea [Unknown]
  - Off label use [Unknown]
  - Prescribed underdose [Unknown]
  - Treatment delayed [Unknown]

NARRATIVE: CASE EVENT DATE: 20210112
